FAERS Safety Report 4415665-8 (Version None)
Quarter: 2004Q3

REPORT INFORMATION
  Report Type: 
  Country: None (occurrence: None)
  Receive Date: 20040730
  Receipt Date: 20040720
  Transmission Date: 20050211
  Serious: Yes (Other)
  Sender: FDA-Public Use
  Company Number: 2004047721

PATIENT
  Sex: Female
  Weight: 86.1834 kg

DRUGS (2)
  1. DILANTIN KAPSEAL [Suspect]
     Indication: EPILEPSY
     Dosage: 300 MG (1 IN 1 D), ORAL
     Route: 048
  2. MULTIVITAMINS (ASCORBIC ACID, ERGOCALCIFEROL, FOLIC ACID, NICOTINAMIDE [Concomitant]

REACTIONS (9)
  - ANTICONVULSANT DRUG LEVEL DECREASED [None]
  - BREAST CANCER FEMALE [None]
  - CATARACT [None]
  - GINGIVAL PAIN [None]
  - JAW DISORDER [None]
  - LOSS OF CONSCIOUSNESS [None]
  - REFUSAL OF TREATMENT BY PATIENT [None]
  - SEDATION [None]
  - TOOTH LOSS [None]
